FAERS Safety Report 8555232-8 (Version None)
Quarter: 2012Q3

REPORT INFORMATION
  Report Type: 
  Country: None (occurrence: None)
  Receive Date: 20120731
  Receipt Date: 20120725
  Transmission Date: 20120928
  Serious: Yes (Hospitalization)
  Sender: FDA-Public Use
  Company Number: CHPA2012US015069

PATIENT
  Age: 88 Year
  Sex: Female

DRUGS (7)
  1. LEVOXYL [Concomitant]
     Indication: HYPOTHYROIDISM
     Dosage: UNK, QD
     Route: 048
  2. VITAMINS NOS [Concomitant]
     Indication: SUPPLEMENTATION THERAPY
     Dosage: UNK, QD
  3. LOPRESSOR [Concomitant]
     Indication: HYPERTENSION
     Dosage: UNK, QD
     Route: 048
  4. COQ10 [Concomitant]
     Indication: SUPPLEMENTATION THERAPY
     Dosage: UNK, QD
     Route: 048
  5. BENEFIBER W/ WHEAT DEXTRIN [Suspect]
     Indication: DIARRHOEA
     Dosage: 3 TSP, QD
     Route: 048
     Dates: start: 20110701, end: 20120701
  6. CRESTOR [Concomitant]
     Indication: BLOOD CHOLESTEROL INCREASED
     Dosage: UNK, QD
     Route: 048
  7. IMODIUM A-D [Concomitant]
     Indication: DIARRHOEA
     Dosage: 2 DF, EVERY FOUR DAYS
     Route: 048
     Dates: start: 20120401, end: 20120601

REACTIONS (9)
  - CEREBRAL HAEMATOMA [None]
  - CONCUSSION [None]
  - THERAPEUTIC RESPONSE UNEXPECTED [None]
  - INCORRECT DOSE ADMINISTERED [None]
  - ROAD TRAFFIC ACCIDENT [None]
  - DECREASED APPETITE [None]
  - DRUG INEFFECTIVE FOR UNAPPROVED INDICATION [None]
  - AMNESIA [None]
  - WEIGHT DECREASED [None]
